FAERS Safety Report 4390309-2 (Version None)
Quarter: 2004Q2

REPORT INFORMATION
  Report Type: 
  Country: None (occurrence: None)
  Receive Date: 20040630
  Receipt Date: 20040622
  Transmission Date: 20050107
  Serious: Yes (Hospitalization)
  Sender: FDA-Public Use
  Company Number: STA-AE-04-MTX-276

PATIENT
  Age: 62 Year
  Sex: Male

DRUGS (15)
  1. METHOTREXATE [Suspect]
     Indication: RHEUMATOID ARTHRITIS
     Dosage: 12.5 MG 1X PER 1 WK, ORAL
     Route: 048
     Dates: start: 20020726, end: 20030504
  2. ENBREL [Suspect]
     Indication: RHEUMATOID ARTHRITIS
     Dosage: 25 MG 2X PER 1 WK, SC
     Route: 058
     Dates: start: 20021219, end: 20030504
  3. PREDNISONE TAB [Suspect]
     Dosage: 15 MG 1 X PER 1 DAY, ORAL
     Route: 048
  4. LODINE [Concomitant]
  5. POTASSIUM (POTASSIUM) [Concomitant]
  6. TENEX [Concomitant]
  7. NEXIUM [Concomitant]
  8. GLUCOPHAGE [Concomitant]
  9. QUININE (QUININE) [Concomitant]
  10. ZOCOR [Concomitant]
  11. ASPIRIN [Concomitant]
  12. ZANTAC [Concomitant]
  13. FOLIC ACID [Concomitant]
  14. FOSAMAX [Concomitant]
  15. LASIX [Concomitant]

REACTIONS (5)
  - AORTIC ATHEROSCLEROSIS [None]
  - DIVERTICULUM [None]
  - ENTEROVESICAL FISTULA [None]
  - URETHRAL HAEMORRHAGE [None]
  - VENTRICULAR EXTRASYSTOLES [None]
